FAERS Safety Report 7029109-3 (Version None)
Quarter: 2010Q4

REPORT INFORMATION
  Report Type: 
  Country: None (occurrence: None)
  Receive Date: 20101005
  Receipt Date: 20100928
  Transmission Date: 20110411
  Serious: No
  Sender: FDA-Public Use
  Company Number: US-B.I. PHARMACEUTICALS,INC./RIDGEFIELD-2010-BP-11022BP

PATIENT
  Sex: Female

DRUGS (4)
  1. SPIRIVA [Suspect]
     Indication: CHRONIC OBSTRUCTIVE PULMONARY DISEASE
     Dosage: 18 MCG
     Route: 055
     Dates: start: 20100701, end: 20100928
  2. MORPHINE [Concomitant]
     Indication: FIBROMYALGIA
  3. LYRICA [Concomitant]
     Indication: FIBROMYALGIA
  4. CODEINE [Concomitant]
     Indication: FIBROMYALGIA

REACTIONS (1)
  - DYSPNOEA [None]
